FAERS Safety Report 23306348 (Version 6)
Quarter: 2024Q1

REPORT INFORMATION
  Report Type: Report from Study
  Country: US (occurrence: US)
  Receive Date: 20231218
  Receipt Date: 20240219
  Transmission Date: 20240410
  Serious: Yes (Hospitalization, Other)
  Sender: FDA-Public Use
  Company Number: US-TAKEDA-2023TUS120085

PATIENT
  Sex: Male
  Weight: 95 kg

DRUGS (2)
  1. VEDOLIZUMAB [Suspect]
     Active Substance: VEDOLIZUMAB
     Indication: Crohn^s disease
     Dosage: 300 MILLIGRAM
     Route: 042
  2. VEDOLIZUMAB [Suspect]
     Active Substance: VEDOLIZUMAB
     Dosage: 300 MILLIGRAM, Q6WEEKS
     Route: 042

REACTIONS (10)
  - Large intestinal obstruction [Unknown]
  - Crohn^s disease [Unknown]
  - Haemorrhage [Unknown]
  - Weight decreased [Unknown]
  - Abdominal discomfort [Unknown]
  - Malaise [Unknown]
  - Product prescribing issue [Unknown]
  - Product dose omission issue [Unknown]
  - Off label use [Unknown]
  - Rash [Unknown]
